FAERS Safety Report 5140445-8 (Version None)
Quarter: 2006Q4

REPORT INFORMATION
  Report Type: 
  Country: None (occurrence: None)
  Receive Date: 20061025
  Receipt Date: 20061011
  Transmission Date: 20070319
  Serious: Yes (Death, Life-Threatening)
  Sender: FDA-Public Use
  Company Number: 200610IM000577

PATIENT
  Age: 4 Month
  Sex: 0

DRUGS (7)
  1. INTERFERON GAMMA-1B [Suspect]
     Indication: BOVINE TUBERCULOSIS
     Dosage: SUBCUTANEOUS
     Route: 058
  2. PREDNISOLONE [Suspect]
     Indication: PROPHYLAXIS AGAINST GRAFT VERSUS HOST DISEASE
  3. TACROLIMUS [Suspect]
     Indication: PROPHYLAXIS AGAINST GRAFT VERSUS HOST DISEASE
  4. ISONIAZID [Concomitant]
  5. RIFAMPICIN [Concomitant]
  6. ETHAMBUTOL HYDROCHLORIDE [Concomitant]
  7. CIPROFLOXACIN [Concomitant]

REACTIONS (10)
  - BILE DUCT OBSTRUCTION [None]
  - BONE MARROW TRANSPLANT [None]
  - EPSTEIN-BARR VIRUS INFECTION [None]
  - HEPATITIS [None]
  - HEPATOSPLENOMEGALY [None]
  - MULTI-ORGAN FAILURE [None]
  - PARAINFLUENZAE VIRUS INFECTION [None]
  - RASH MACULO-PAPULAR [None]
  - RESPIRATORY FAILURE [None]
  - RHINOVIRUS INFECTION [None]
